FAERS Safety Report 4729747-4 (Version None)
Quarter: 2005Q3

REPORT INFORMATION
  Report Type: 
  Country: None (occurrence: None)
  Receive Date: 20050801
  Receipt Date: 20050714
  Transmission Date: 20060218
  Serious: No
  Sender: FDA-Public Use
  Company Number: FR-MERCK-0507FRA00063M

PATIENT
  Sex: Female

DRUGS (2)
  1. ALDOMET [Suspect]
     Indication: HYPERTENSION
     Route: 048
  2. CANDESARTAN [Suspect]
     Indication: HYPERTENSION
     Route: 048

REACTIONS (10)
  - APGAR SCORE LOW [None]
  - BLOOD BICARBONATE DECREASED [None]
  - CONGENITAL ANOMALY [None]
  - DELAYED FONTANELLE CLOSURE [None]
  - DRUG EXPOSURE DURING PREGNANCY [None]
  - FOETAL DISORDER [None]
  - KIDNEY ENLARGEMENT [None]
  - OLIGOHYDRAMNIOS [None]
  - POLYURIA [None]
  - RENAL TUBULAR DISORDER [None]
